FAERS Safety Report 8811812 (Version 1)
Quarter: 2012Q4

REPORT INFORMATION
  Report Type: 
  Country: CA (occurrence: CA)
  Receive Date: 20120927
  Receipt Date: 20120927
  Transmission Date: 20130627
  Serious: Yes (Other)
  Sender: FDA-Public Use
  Company Number: CA-GLAXOSMITHKLINE-A0987581A

PATIENT
  Age: 51 Year
  Sex: Female

DRUGS (1)
  1. VENTOLIN [Suspect]
     Indication: CHRONIC OBSTRUCTIVE PULMONARY DISEASE
     Dosage: 100MCG As required
     Route: 055

REACTIONS (2)
  - Chronic obstructive pulmonary disease [Recovered/Resolved]
  - Product quality issue [Unknown]
